FAERS Safety Report 9060512 (Version 1)
Quarter: 2013Q1

REPORT INFORMATION
  Report Type: Other
  Country: GB (occurrence: GB)
  Receive Date: 20130212
  Receipt Date: 20130212
  Transmission Date: 20140127
  Serious: Yes (Other)
  Sender: FDA-Public Use
  Company Number: GB-WATSON-2013-02071

PATIENT
  Age: 30 Year
  Sex: Male

DRUGS (1)
  1. SERTRALINE HYDROCHLORIDE (UNKNOWN) [Suspect]
     Indication: DEPRESSION
     Dosage: 100 MG, UNKNOWN
     Route: 048
     Dates: start: 201202, end: 201301

REACTIONS (8)
  - Diarrhoea [Recovering/Resolving]
  - Night sweats [Not Recovered/Not Resolved]
  - Abdominal distension [Unknown]
  - Gastrointestinal pain [Unknown]
  - Dehydration [Unknown]
  - Fatigue [Unknown]
  - Abnormal faeces [Unknown]
  - Mucous stools [Unknown]
